FAERS Safety Report 8785647 (Version 1)
Quarter: 2012Q4

REPORT INFORMATION
  Report Type: 
  Country: IT (occurrence: IT)
  Receive Date: 20120914
  Receipt Date: 20120914
  Transmission Date: 20130627
  Serious: Yes (Hospitalization)
  Sender: FDA-Public Use
  Company Number: IT-ROXANE LABORATORIES, INC.-2012-RO-01820RO

PATIENT
  Age: 50 Year
  Sex: Male

DRUGS (3)
  1. METHOTREXATE [Suspect]
     Indication: PSORIASIS
  2. ADALIMUMAB [Suspect]
     Indication: PSORIASIS
  3. CYCLOSPORINE [Suspect]
     Indication: PSORIASIS

REACTIONS (2)
  - Benign salivary gland neoplasm [Recovered/Resolved]
  - Drug ineffective [Unknown]
